FAERS Safety Report 5474908-2 (Version None)
Quarter: 2007Q3

REPORT INFORMATION
  Report Type: 
  Country: None (occurrence: None)
  Receive Date: 20070831
  Receipt Date: 20070406
  Transmission Date: 20080115
  Serious: No
  Sender: FDA-Public Use
  Company Number: 239622

PATIENT
  Age: 77 Year
  Sex: Female

DRUGS (3)
  1. LUCENTIS [Suspect]
     Indication: MACULAR DEGENERATION
     Dosage: INTRAVITREAL
  2. FOSAMAX [Concomitant]
  3. THYROID MEDICATION (THYROID DRUG NOS) [Concomitant]

REACTIONS (1)
  - DIPLOPIA [None]
